FAERS Safety Report 6399134-4 (Version None)
Quarter: 2009Q4

REPORT INFORMATION
  Report Type: 
  Country: None (occurrence: None)
  Receive Date: 20091008
  Receipt Date: 20091001
  Transmission Date: 20100525
  Serious: Yes (Other)
  Sender: FDA-Public Use
  Company Number: 2009S1007579

PATIENT
  Age: 73 Year
  Sex: Male
  Weight: 101.1521 kg

DRUGS (9)
  1. PHOSPHOSODA FLAVOR NOT SPECIFIED [Suspect]
     Indication: COLONOSCOPY
     Dosage: PO; PO; PO
     Route: 046
     Dates: start: 20020515
  2. PHOSPHOSODA FLAVOR NOT SPECIFIED [Suspect]
     Indication: COLONOSCOPY
     Dosage: PO; PO; PO
     Route: 046
     Dates: start: 20040101
  3. PHOSPHOSODA FLAVOR NOT SPECIFIED [Suspect]
     Indication: COLONOSCOPY
     Dosage: PO; PO; PO
     Route: 046
     Dates: start: 20070101
  4. ALBUTEROL SULFATE AND IPRATROPIUM BROMIDE [Concomitant]
  5. ATENOLOL [Concomitant]
  6. CLOPIDOGREL [Concomitant]
  7. HYDROCORITSONE [Concomitant]
  8. LISINOPRIL [Concomitant]
  9. INDOMETHACIN [Concomitant]

REACTIONS (1)
  - RENAL FAILURE CHRONIC [None]
